FAERS Safety Report 4624360-1 (Version None)
Quarter: 2005Q1

REPORT INFORMATION
  Report Type: 
  Country: None (occurrence: None)
  Receive Date: 20050330
  Receipt Date: 20050330
  Transmission Date: 20050727
  Serious: Yes (Other)
  Sender: FDA-Public Use
  Company Number: None

PATIENT
  Age: 54 Year
  Sex: Female

DRUGS (2)
  1. PERCOCET [Suspect]
     Indication: OVERDOSE
     Dosage: 5/325 MG 2 TAB PO
     Route: 048
  2. PERCOCET [Suspect]
     Indication: POST POLIO SYNDROME
     Dosage: 5/325 MG 2 TAB PO
     Route: 048

REACTIONS (2)
  - DRUG INEFFECTIVE [None]
  - NAUSEA [None]
